FAERS Safety Report 20316416 (Version 1)
Quarter: 2022Q1

REPORT INFORMATION
  Report Type: Spontaneous
  Country: US (occurrence: US)
  Receive Date: 20220110
  Receipt Date: 20220110
  Transmission Date: 20220424
  Serious: No
  Sender: FDA-Public Use
  Company Number: US-CELGENE-USA-20220101485

PATIENT
  Sex: Male

DRUGS (3)
  1. REVLIMID [Suspect]
     Active Substance: LENALIDOMIDE
     Indication: Diffuse large B-cell lymphoma
     Dosage: 10 MILLIGRAM
     Route: 048
     Dates: start: 20210830
  2. REVLIMID [Suspect]
     Active Substance: LENALIDOMIDE
     Indication: Follicular lymphoma
  3. UDENYCA [Concomitant]
     Active Substance: PEGFILGRASTIM-CBQV
     Indication: Product used for unknown indication
     Route: 065

REACTIONS (1)
  - Full blood count abnormal [Unknown]
